FAERS Safety Report 8317946-4 (Version None)
Quarter: 2012Q2

REPORT INFORMATION
  Report Type: 
  Country: None (occurrence: None)
  Receive Date: 20120427
  Receipt Date: 20120420
  Transmission Date: 20120825
  Serious: Yes (Other)
  Sender: FDA-Public Use
  Company Number: US-COVIDIEN/TYCO HEALTHCARE/MALLINCKRODT-T201201535

PATIENT
  Age: 63 Year
  Sex: Female

DRUGS (17)
  1. TECHNETIUM TC 99M SESTAMIBI [Suspect]
     Indication: SCAN MYOCARDIAL PERFUSION
     Dosage: UNK
     Route: 042
     Dates: start: 20120419, end: 20120419
  2. TECHNETIUM TC 99M SESTAMIBI [Suspect]
     Dosage: UNK
     Route: 042
     Dates: start: 20120419, end: 20120419
  3. ULTRA-TECHNEKOW [Suspect]
     Indication: SCAN MYOCARDIAL PERFUSION
     Dosage: 10 MCI, SINGLE
     Route: 042
     Dates: start: 20120419, end: 20120419
  4. ACCUPRIL [Concomitant]
     Dosage: UNK
  5. COUMADIN [Concomitant]
     Dosage: UNK
  6. PROTONIX [Concomitant]
     Dosage: UNK
  7. ZOCOR [Concomitant]
     Dosage: UNK
  8. CARAFATE [Concomitant]
     Dosage: UNK
  9. LEXAPRO [Concomitant]
     Dosage: UNK
  10. MEGACE [Concomitant]
     Dosage: UNK
  11. REGLAN [Concomitant]
     Dosage: UNK
  12. ULTRA-TECHNEKOW [Suspect]
     Dosage: 30 MCI, SINGLE
     Route: 042
     Dates: start: 20120419, end: 20120419
  13. DURAGESIC-100 [Concomitant]
     Dosage: UNK
  14. PREDNISONE [Concomitant]
     Dosage: UNK
  15. SINEMET [Concomitant]
     Dosage: UNK
  16. SYNTHROID [Concomitant]
     Dosage: UNK
  17. PLAQUENIL [Concomitant]
     Dosage: UNK

REACTIONS (2)
  - CONVULSION [None]
  - CEREBROVASCULAR ACCIDENT [None]
